FAERS Safety Report 7755902-5 (Version None)
Quarter: 2011Q3

REPORT INFORMATION
  Report Type: 
  Country: None (occurrence: None)
  Receive Date: 20110908
  Receipt Date: 20110826
  Transmission Date: 20111222
  Serious: Yes (Hospitalization)
  Sender: FDA-Public Use
  Company Number: 2011PROUSA00617

PATIENT
  Age: 56 Year
  Sex: Male

DRUGS (2)
  1. PROVENGE [Suspect]
     Indication: PROSTATE CANCER METASTATIC
     Dosage: 250 ML, SINGLE, INTRAVENOUS
     Route: 042
     Dates: start: 20110630, end: 20110630
  2. PROVENGE [Suspect]
     Dosage: 250 ML, SINGLE, INTRAVENOUS
     Route: 042
     Dates: start: 20110811, end: 20110811

REACTIONS (4)
  - RENAL FAILURE [None]
  - URINARY RETENTION [None]
  - OEDEMA PERIPHERAL [None]
  - MALAISE [None]
